FAERS Safety Report 25086904 (Version 2)
Quarter: 2025Q2

REPORT INFORMATION
  Report Type: Spontaneous
  Country: GB (occurrence: GB)
  Receive Date: 20250318
  Receipt Date: 20250501
  Transmission Date: 20250717
  Serious: Yes (Hospitalization, Other)
  Sender: NOVO NORDISK
  Company Number: GB-NOVOPROD-1382547

PATIENT
  Age: 64 Year
  Sex: Male
  Weight: 115 kg

DRUGS (12)
  1. RYBELSUS [Suspect]
     Active Substance: SEMAGLUTIDE
     Indication: Obesity
     Route: 048
  2. RYBELSUS [Suspect]
     Active Substance: SEMAGLUTIDE
     Dosage: 14 MG, QD
     Route: 048
     Dates: start: 20241213, end: 20250124
  3. RYBELSUS [Suspect]
     Active Substance: SEMAGLUTIDE
     Indication: Type 2 diabetes mellitus
     Route: 048
     Dates: start: 20240824
  4. RAMIPRIL [Concomitant]
     Active Substance: RAMIPRIL
     Dosage: 10 MG, QD
     Route: 048
  5. RAMIPRIL [Concomitant]
     Active Substance: RAMIPRIL
     Indication: Product used for unknown indication
     Route: 048
     Dates: start: 20240827
  6. ATORVASTATIN [Concomitant]
     Active Substance: ATORVASTATIN
     Indication: Product used for unknown indication
     Dosage: 10 MG, QD (EVERY NIGHT)
     Route: 048
     Dates: start: 20211124
  7. VITAMIN D NOS [Concomitant]
     Active Substance: CHOLECALCIFEROL\ERGOCALCIFEROL
     Indication: Product used for unknown indication
     Dosage: 1000 IU, QD
     Route: 048
     Dates: start: 20210806
  8. SERTRALINE [Concomitant]
     Active Substance: SERTRALINE HYDROCHLORIDE
     Indication: Product used for unknown indication
     Dosage: 100 MG, QD
     Route: 048
     Dates: start: 20200323
  9. FUROSEMIDE [Concomitant]
     Active Substance: FUROSEMIDE
     Indication: Product used for unknown indication
     Dosage: 20 MG, QD
     Route: 048
     Dates: start: 20201222
  10. RISPERIDONE [Concomitant]
     Active Substance: RISPERIDONE
     Dosage: 0.8 MG, QD
     Route: 048
     Dates: start: 202408
  11. RISPERIDONE [Concomitant]
     Active Substance: RISPERIDONE
     Indication: Product used for unknown indication
     Route: 048
     Dates: start: 20200710
  12. LANOLIN\ZINC OXIDE [Concomitant]
     Active Substance: LANOLIN\ZINC OXIDE
     Indication: Product used for unknown indication
     Route: 061
     Dates: start: 20250103

REACTIONS (4)
  - Fall [Recovered/Resolved]
  - Hyperglycaemia [Recovered/Resolved]
  - Dizziness [Recovered/Resolved]
  - Pancreatic steatosis [Unknown]

NARRATIVE: CASE EVENT DATE: 20250124
